FAERS Safety Report 24452039 (Version 1)
Quarter: 2024Q4

REPORT INFORMATION
  Report Type: Spontaneous
  Country: US (occurrence: US)
  Receive Date: 20241017
  Receipt Date: 20241017
  Transmission Date: 20250114
  Serious: No
  Sender: SUNOVION
  Company Number: US-UROVANT SCIENCES GMBH-202401-URV-000018

PATIENT
  Sex: Female

DRUGS (3)
  1. GEMTESA [Suspect]
     Active Substance: VIBEGRON
     Indication: Hypertonic bladder
     Dosage: 75 MG, QD
     Route: 065
     Dates: start: 202311
  2. GEMTESA [Suspect]
     Active Substance: VIBEGRON
     Dosage: 75 MG, 4 TIMES/WK 4 TIMES/WK
     Route: 065
  3. GEMTESA [Suspect]
     Active Substance: VIBEGRON
     Dosage: 75 MG, 5 TIMES/WK 5 TIMES/WK
     Route: 065

REACTIONS (3)
  - Inappropriate schedule of product administration [Unknown]
  - Faeces hard [Not Recovered/Not Resolved]
  - Constipation [Not Recovered/Not Resolved]
